FAERS Safety Report 5909658-9 (Version None)
Quarter: 2008Q4

REPORT INFORMATION
  Report Type: 
  Country: None (occurrence: None)
  Receive Date: 20081007
  Receipt Date: 20080930
  Transmission Date: 20090506
  Serious: Yes (Death, Hospitalization, Other)
  Sender: FDA-Public Use
  Company Number: PHHY2008JP21826

PATIENT
  Age: 65 Year
  Sex: Male

DRUGS (7)
  1. CYCLOSPORINE [Suspect]
     Indication: RHEUMATOID ARTHRITIS
     Dosage: 3 MG/KG
     Route: 048
     Dates: start: 20040525
  2. PREDNISOLONE [Concomitant]
     Indication: RHEUMATOID ARTHRITIS
     Dosage: 10 MG
     Route: 048
  3. PREDNISOLONE [Concomitant]
     Dosage: INCREASED BY 60 MG
     Route: 048
     Dates: start: 20040101
  4. PREDNISOLONE [Concomitant]
     Dosage: 40 MG, QOD
     Route: 048
     Dates: start: 20040507
  5. PREDNISOLONE [Concomitant]
     Dosage: 10 MG
     Route: 048
     Dates: start: 20040528, end: 20040612
  6. IMMUNE GLOBULIN INTRAVENOUS (HUMAN) [Concomitant]
     Indication: RHEUMATOID ARTHRITIS
     Dosage: 400 MG/KG
     Dates: start: 20040115, end: 20040119
  7. DIURETICS [Suspect]
     Indication: ANURIA
     Dosage: UNK
     Dates: start: 20041006

REACTIONS (15)
  - ANURIA [None]
  - ARTHRALGIA [None]
  - DEMYELINATING POLYNEUROPATHY [None]
  - DIARRHOEA [None]
  - DIFFUSE LARGE B-CELL LYMPHOMA [None]
  - DYSPNOEA [None]
  - GASTROENTERITIS [None]
  - HYPOTENSION [None]
  - JOINT SWELLING [None]
  - LYMPHADENOPATHY [None]
  - MUSCULOSKELETAL STIFFNESS [None]
  - PYREXIA [None]
  - RENAL FAILURE ACUTE [None]
  - RHEUMATOID ARTHRITIS [None]
  - SOMNOLENCE [None]
